FAERS Safety Report 5994557-7 (Version None)
Quarter: 2008Q4

REPORT INFORMATION
  Report Type: 
  Country: None (occurrence: None)
  Receive Date: 20081212
  Receipt Date: 20081201
  Transmission Date: 20090506
  Serious: Yes (Hospitalization, Disabling)
  Sender: FDA-Public Use
  Company Number: IE-WATSON-2008-04620

PATIENT
  Sex: Male

DRUGS (1)
  1. TRELSTAR LA (WITH CLIP'N'JECT) (WATSON LABORATORIES) [Suspect]
     Indication: PROSTATE CANCER
     Dosage: 11.25 MG, 3 MONTHLY
     Route: 030
     Dates: start: 20080613

REACTIONS (5)
  - CELLULITIS [None]
  - HAEMATOMA [None]
  - HAEMORRHAGE [None]
  - INJECTION SITE ABSCESS [None]
  - INJECTION SITE REACTION [None]
